FAERS Safety Report 9527851 (Version 1)
Quarter: 2013Q3

REPORT INFORMATION
  Report Type: Spontaneous
  Country: US (occurrence: US)
  Receive Date: 20130917
  Receipt Date: 20130917
  Transmission Date: 20140515
  Serious: No
  Sender: FDA-Public Use
  Company Number: US-PFIZER INC-2013264600

PATIENT
  Age: 20 Year
  Sex: Female
  Weight: 57.14 kg

DRUGS (8)
  1. MEDROL [Suspect]
     Indication: SKIN EXFOLIATION
     Dosage: UNK
     Dates: start: 201307
  2. MEDROL [Suspect]
     Indication: SKIN EXFOLIATION
  3. HUMIRA [Suspect]
     Dosage: 160 MG, 1X/DAY (160 MG,1 IN 1 D)
     Dates: start: 20130529, end: 20130529
  4. HUMIRA [Suspect]
     Dosage: 80 MG, 1X/DAY (80 MG,1 IN 1 D)
     Dates: start: 20130612, end: 20130612
  5. HUMIRA [Suspect]
     Dosage: 40 MG,  1 IN 2 WK
     Dates: start: 20130626, end: 20130710
  6. LIALDA [Concomitant]
     Indication: CROHN^S DISEASE
     Dosage: UNK
  7. PREDNISONE [Concomitant]
     Indication: CROHN^S DISEASE
     Dosage: UNK (AS REQUIRED)
  8. DICYCLOMINE [Concomitant]
     Indication: MUSCLE SPASMS
     Dosage: UNK (AS REQUIRED)

REACTIONS (5)
  - Skin exfoliation [Unknown]
  - Blister [Unknown]
  - Wound drainage [Unknown]
  - Pruritus [Unknown]
  - Psoriasis [Unknown]
